FAERS Safety Report 5853582-7 (Version None)
Quarter: 2008Q3

REPORT INFORMATION
  Report Type: 
  Country: None (occurrence: None)
  Receive Date: 20080822
  Receipt Date: 20080812
  Transmission Date: 20090109
  Serious: Yes (Death)
  Sender: FDA-Public Use
  Company Number: US-JNJFOC-20080803652

PATIENT
  Age: 17 Day
  Sex: Male

DRUGS (6)
  1. PSEUDOEPHEDRINE HCL [Suspect]
     Indication: NASOPHARYNGITIS
  2. PSEUDOEPHEDRINE HCL [Suspect]
     Indication: COUGH
  3. DEXTROMETHORPHAN HBR [Suspect]
     Indication: NASOPHARYNGITIS
  4. DEXTROMETHORPHAN HBR [Suspect]
     Indication: COUGH
  5. BROMPHENIRAMINE [Suspect]
     Indication: NASOPHARYNGITIS
  6. BROMPHENIRAMINE [Suspect]
     Indication: COUGH

REACTIONS (1)
  - PNEUMONIA [None]
